FAERS Safety Report 4359834-4 (Version None)
Quarter: 2004Q2

REPORT INFORMATION
  Report Type: 
  Country: None (occurrence: None)
  Receive Date: 20040514
  Receipt Date: 20040429
  Transmission Date: 20050107
  Serious: Yes (Other)
  Sender: FDA-Public Use
  Company Number: 2003115717

PATIENT
  Sex: Male

DRUGS (2)
  1. VIAGRA [Suspect]
     Indication: ILL-DEFINED DISORDER
     Dosage: ORAL
     Route: 048
  2. VARDENAFIL HYDROCHLORIDE (VARDENAFIL HYDROCHLORIDE) [Concomitant]

REACTIONS (2)
  - DRUG EFFECT DECREASED [None]
  - PROSTATE CANCER [None]
